FAERS Safety Report 18752671 (Version 1)
Quarter: 2021Q1

REPORT INFORMATION
  Report Type: Spontaneous
  Country: US (occurrence: US)
  Receive Date: 20210118
  Receipt Date: 20210118
  Transmission Date: 20210419
  Serious: Yes (Other)
  Sender: FDA-Public Use
  Company Number: US-PURDUE-USA-2020-0198513

PATIENT
  Sex: Female

DRUGS (8)
  1. FENTANYL. [Suspect]
     Active Substance: FENTANYL
     Indication: NECK SURGERY
  2. KADIAN [Suspect]
     Active Substance: MORPHINE SULFATE
     Indication: SPINAL OPERATION
     Dosage: UNK
     Route: 065
  3. OXYCONTIN [Suspect]
     Active Substance: OXYCODONE HYDROCHLORIDE
     Indication: NECK SURGERY
     Dosage: UNK
     Route: 048
  4. OXYCODONE HYDROCHLORIDE (SIMILAR TO NDA 22?272) [Suspect]
     Active Substance: OXYCODONE HYDROCHLORIDE
     Indication: NECK SURGERY
     Dosage: UNK
     Route: 048
  5. OXYCODONE HYDROCHLORIDE (SIMILAR TO NDA 22?272) [Suspect]
     Active Substance: OXYCODONE HYDROCHLORIDE
     Indication: SPINAL OPERATION
  6. OXYCONTIN [Suspect]
     Active Substance: OXYCODONE HYDROCHLORIDE
     Indication: SPINAL OPERATION
  7. FENTANYL. [Suspect]
     Active Substance: FENTANYL
     Indication: SPINAL OPERATION
     Dosage: UNK
     Route: 065
  8. KADIAN [Suspect]
     Active Substance: MORPHINE SULFATE
     Indication: NECK SURGERY

REACTIONS (1)
  - Road traffic accident [Unknown]
